FAERS Safety Report 15659274 (Version 2)
Quarter: 2019Q4

REPORT INFORMATION
  Report Type: Spontaneous
  Country: US (occurrence: US)
  Receive Date: 20181127
  Receipt Date: 20191030
  Transmission Date: 20200122
  Serious: No
  Sender: FDA-Public Use
  Company Number: US-009507513-1810USA013533

PATIENT
  Age: 57 Year
  Sex: Male

DRUGS (5)
  1. ASMANEX [Suspect]
     Active Substance: MOMETASONE FUROATE
     Dosage: ANOTHER DEFECTIVE UNIT; ONCE A DAY
     Route: 055
     Dates: start: 2018
  2. ASMANEX [Suspect]
     Active Substance: MOMETASONE FUROATE
     Dosage: ^^ABOUT 6 MONTHS AGO^^; ONCE A DAY
     Route: 055
     Dates: start: 201804, end: 2018
  3. ASMANEX [Suspect]
     Active Substance: MOMETASONE FUROATE
     Indication: ASTHMA
     Dosage: UNK, ONCE A DAY
     Route: 055
     Dates: start: 2014
  4. ASMANEX [Suspect]
     Active Substance: MOMETASONE FUROATE
     Dosage: UNK, ONCE A DAY
     Dates: start: 20190917
  5. ALERT (CAFFEINE) [Concomitant]

REACTIONS (8)
  - Chest discomfort [Not Recovered/Not Resolved]
  - Product quality issue [Unknown]
  - Poor quality device used [Unknown]
  - Poor quality device used [Unknown]
  - Incorrect dose administered [Unknown]
  - Product dose omission [Unknown]
  - Product quality issue [Unknown]
  - Product quality issue [Unknown]

NARRATIVE: CASE EVENT DATE: 2018
